FAERS Safety Report 9575468 (Version 1)
Quarter: 2013Q4

REPORT INFORMATION
  Report Type: Spontaneous
  Country: US (occurrence: US)
  Receive Date: 20131001
  Receipt Date: 20131001
  Transmission Date: 20140711
  Serious: No
  Sender: FDA-Public Use
  Company Number: US-AMGEN-USASP2012083193

PATIENT
  Age: 64 Year
  Sex: Female

DRUGS (9)
  1. ENBREL [Suspect]
     Indication: PRODUCT USED FOR UNKNOWN INDICATION
     Dosage: 50 MG, QWK
     Route: 058
  2. TRAZODONE [Concomitant]
     Dosage: 50 MG, UNK
  3. TYLENOL                            /00020001/ [Concomitant]
     Dosage: 500 MG, UNK
  4. CALCIUM [Concomitant]
     Dosage: 500 UNK, UNK
  5. VITAMIN B-12 [Concomitant]
     Dosage: 50 MUG, UNK
  6. ARTHROTEC [Concomitant]
     Dosage: 50 UNK, UNK
  7. FISH OIL [Concomitant]
     Dosage: UNK
  8. VITAMIN D                          /00107901/ [Concomitant]
     Dosage: 1000 UNIT, UNK
  9. CIMZIA [Concomitant]
     Dosage: 200 MG/ML, UNK

REACTIONS (1)
  - Drug ineffective [Unknown]
